FAERS Safety Report 8837053 (Version 3)
Quarter: 2013Q2

REPORT INFORMATION
  Report Type: Spontaneous
  Country: US (occurrence: US)
  Receive Date: 20121011
  Receipt Date: 20130422
  Transmission Date: 20140414
  Serious: Yes (Other)
  Sender: FDA-Public Use
  Company Number: CHPA2012US021164

PATIENT
  Age: 48 Year
  Sex: Female

DRUGS (4)
  1. PRIVATE LABEL STRENGTH UNKNOWN [Suspect]
     Indication: SMOKING CESSATION THERAPY
     Dosage: 1 PATCH A DAY
     Route: 062
  2. CVS [Suspect]
     Indication: SMOKING CESSATION THERAPY
     Dosage: 21 MG, UNK
     Route: 062
     Dates: start: 20130412
  3. CVS [Suspect]
     Dosage: 21 MG, QD
     Route: 062
     Dates: start: 20121026
  4. CVS [Suspect]
     Dosage: 21 MG, QD
     Route: 062
     Dates: start: 20120930, end: 20121004

REACTIONS (8)
  - Transient ischaemic attack [Recovered/Resolved]
  - Somnambulism [Recovered/Resolved]
  - Asthenia [Recovered/Resolved]
  - Hyperhidrosis [Recovered/Resolved]
  - Application site pain [Recovered/Resolved]
  - Application site pruritus [Not Recovered/Not Resolved]
  - Application site erythema [Recovered/Resolved]
  - Application site swelling [Unknown]
